FAERS Safety Report 24023104 (Version 11)
Quarter: 2024Q3

REPORT INFORMATION
  Report Type: Report from Study
  Country: CN (occurrence: CN)
  Receive Date: 20240627
  Receipt Date: 20240710
  Transmission Date: 20241016
  Serious: No
  Sender: ROCHE
  Company Number: CN-ROCHE-3056597

PATIENT
  Age: 70 Year
  Sex: Female
  Weight: 51.0 kg

DRUGS (52)
  1. ALECTINIB [Suspect]
     Active Substance: ALECTINIB
     Indication: Non-small cell lung cancer metastatic
     Route: 048
     Dates: start: 20211217
  2. ZOLEDRONIC ACID [Concomitant]
     Active Substance: ZOLEDRONIC ACID
     Indication: Metastases to bone
     Route: 050
     Dates: start: 20211219, end: 20211219
  3. ZOLEDRONIC ACID [Concomitant]
     Active Substance: ZOLEDRONIC ACID
     Route: 050
     Dates: start: 20220114, end: 20220114
  4. ZOLEDRONIC ACID [Concomitant]
     Active Substance: ZOLEDRONIC ACID
     Route: 050
     Dates: start: 20220210, end: 20220210
  5. ZOLEDRONIC ACID [Concomitant]
     Active Substance: ZOLEDRONIC ACID
     Route: 050
     Dates: start: 20220311, end: 20220311
  6. ZOLEDRONIC ACID [Concomitant]
     Active Substance: ZOLEDRONIC ACID
     Dosage: FREQUENCY TEXT:QM
     Route: 050
     Dates: start: 20230111, end: 20230312
  7. ZOLEDRONIC ACID [Concomitant]
     Active Substance: ZOLEDRONIC ACID
     Route: 050
     Dates: start: 20220409, end: 20220409
  8. ZOLEDRONIC ACID [Concomitant]
     Active Substance: ZOLEDRONIC ACID
     Route: 050
     Dates: start: 20220507, end: 20220507
  9. ZOLEDRONIC ACID [Concomitant]
     Active Substance: ZOLEDRONIC ACID
     Route: 050
     Dates: start: 20220602, end: 20220602
  10. ZOLEDRONIC ACID [Concomitant]
     Active Substance: ZOLEDRONIC ACID
     Route: 042
     Dates: start: 20230212, end: 20230212
  11. ZOLEDRONIC ACID [Concomitant]
     Active Substance: ZOLEDRONIC ACID
     Route: 042
     Dates: start: 20230312, end: 20230312
  12. ZOLEDRONIC ACID [Concomitant]
     Active Substance: ZOLEDRONIC ACID
     Route: 042
     Dates: start: 20221222, end: 20221222
  13. ZOLEDRONIC ACID [Concomitant]
     Active Substance: ZOLEDRONIC ACID
     Route: 042
     Dates: start: 20230111, end: 20230111
  14. VITAMIN C [Concomitant]
     Active Substance: ASCORBIC ACID
     Route: 050
     Dates: start: 20211220, end: 20211220
  15. VITAMIN C [Concomitant]
     Active Substance: ASCORBIC ACID
     Route: 050
     Dates: start: 20221120, end: 20221123
  16. VITAMIN C [Concomitant]
     Active Substance: ASCORBIC ACID
     Dosage: FREQUENCY TEXT:PRN
     Route: 050
     Dates: start: 20230111, end: 20230111
  17. VITAMIN C [Concomitant]
     Active Substance: ASCORBIC ACID
     Route: 050
     Dates: start: 20230211, end: 20230213
  18. VITAMIN C [Concomitant]
     Active Substance: ASCORBIC ACID
     Dosage: FREQUENCY TEXT:PRN
     Route: 050
     Dates: start: 20230311, end: 20230311
  19. VITAMIN C [Concomitant]
     Active Substance: ASCORBIC ACID
     Dosage: FREQUENCY TEXT:PRN
     Route: 050
     Dates: start: 20221120, end: 20221123
  20. VITAMIN B6 [Concomitant]
     Active Substance: PYRIDOXINE HYDROCHLORIDE
     Route: 050
     Dates: start: 20211220, end: 20211220
  21. VITAMIN B6 [Concomitant]
     Active Substance: PYRIDOXINE HYDROCHLORIDE
     Route: 050
     Dates: start: 20220310, end: 20220313
  22. VITAMIN B6 [Concomitant]
     Active Substance: PYRIDOXINE HYDROCHLORIDE
     Route: 050
     Dates: start: 20221120, end: 20221123
  23. VITAMIN B6 [Concomitant]
     Active Substance: PYRIDOXINE HYDROCHLORIDE
     Dosage: FREQUENCY TEXT:PRN
     Route: 050
     Dates: start: 20230111, end: 20230111
  24. VITAMIN B6 [Concomitant]
     Active Substance: PYRIDOXINE HYDROCHLORIDE
     Route: 050
     Dates: start: 20230211, end: 20230213
  25. VITAMIN B6 [Concomitant]
     Active Substance: PYRIDOXINE HYDROCHLORIDE
     Dosage: FREQUENCY TEXT:PRN
     Route: 050
     Dates: start: 20230311, end: 20230311
  26. DEXAMETHASONE SODIUM PHOSPHATE [Concomitant]
     Active Substance: DEXAMETHASONE PHOSPHATE\DEXAMETHASONE SODIUM PHOSPHATE
     Route: 050
     Dates: start: 20211220, end: 20211220
  27. ACETYLCYSTEINE [Concomitant]
     Active Substance: ACETYLCYSTEINE
     Route: 048
     Dates: start: 20220114, end: 20220116
  28. MATRINE [Concomitant]
     Active Substance: MATRINE
     Route: 050
     Dates: start: 20220211, end: 20220212
  29. ZOLEDRONIC ACID [Concomitant]
     Active Substance: ZOLEDRONIC ACID
     Dosage: TREATMENT OF BONE?METASTASES
     Route: 050
     Dates: start: 20221022, end: 20221022
  30. ZOLEDRONIC ACID [Concomitant]
     Active Substance: ZOLEDRONIC ACID
     Dosage: TREATMENT OF BONE?METASTASES
     Route: 050
     Dates: start: 20221022, end: 20221022
  31. ZOLEDRONIC ACID [Concomitant]
     Active Substance: ZOLEDRONIC ACID
     Dosage: FREQUENCY TEXT:QM
     Route: 050
     Dates: start: 20230111, end: 20230312
  32. MANNATIDE [Concomitant]
     Dosage: TREATMENT OF BONE?METASTASES
     Route: 050
     Dates: start: 20220409, end: 20220409
  33. MANNATIDE [Concomitant]
     Dosage: TREATMENT OF BONE?METASTASES
     Route: 050
     Dates: start: 20220603, end: 20220604
  34. POTASSIUM CHLORIDE [Concomitant]
     Active Substance: POTASSIUM CHLORIDE
     Indication: Hypokalaemia
     Route: 048
     Dates: start: 20220726, end: 20220731
  35. POTASSIUM CHLORIDE [Concomitant]
     Active Substance: POTASSIUM CHLORIDE
     Route: 048
     Dates: start: 20211221, end: 20211222
  36. POTASSIUM CHLORIDE [Concomitant]
     Active Substance: POTASSIUM CHLORIDE
     Route: 050
     Dates: start: 20211221, end: 20211222
  37. COMPOUND KUSHEN INJECTION [Concomitant]
     Route: 050
     Dates: start: 20220407, end: 20220410
  38. COMPOUND KUSHEN INJECTION [Concomitant]
     Route: 050
     Dates: start: 20230110, end: 20230112
  39. COMPOUND KUSHEN INJECTION [Concomitant]
     Dosage: FREQUENCY TEXT:PRN
     Route: 050
     Dates: start: 20230211, end: 20230211
  40. COMPOUND KUSHEN INJECTION [Concomitant]
     Dosage: FREQUENCY TEXT:PRN
     Route: 050
     Dates: start: 20230213, end: 20230213
  41. COMPOUND KUSHEN INJECTION [Concomitant]
     Dosage: FREQUENCY TEXT:PRN
     Route: 050
     Dates: start: 20230311, end: 20230311
  42. COMPOUND KUSHEN INJECTION [Concomitant]
     Dosage: FREQUENCY TEXT:PRN
     Route: 050
     Dates: start: 20230313, end: 20230313
  43. BERBERINE [Concomitant]
     Active Substance: BERBERINE
     Route: 048
     Dates: start: 20220729, end: 20220731
  44. DIETARY SUPPLEMENT\OPHIOCORDYCEPS SINENSIS [Concomitant]
     Active Substance: DIETARY SUPPLEMENT\OPHIOCORDYCEPS SINENSIS
     Route: 048
     Dates: start: 20230111
  45. MONTMORILLONITE [Concomitant]
     Active Substance: MONTMORILLONITE
     Indication: Diarrhoea
     Route: 048
     Dates: start: 20230112, end: 20230113
  46. URSODIOL [Concomitant]
     Active Substance: URSODIOL
     Route: 048
     Dates: start: 20230315
  47. URSODIOL [Concomitant]
     Active Substance: URSODIOL
     Route: 048
     Dates: start: 20230212
  48. BLOOD TREASURE MIXTURE (UNK INGREDIENTS) [Concomitant]
     Indication: Platelet count increased
     Route: 048
     Dates: start: 20230315
  49. COMPOUND YIGANLING CAPSULE [Concomitant]
     Route: 048
     Dates: start: 20211220
  50. COMPOUND YIGANLING CAPSULE [Concomitant]
     Route: 048
     Dates: start: 20211220
  51. COMPOUND YIGANLING CAPSULE [Concomitant]
     Route: 048
     Dates: start: 20221021, end: 20231024
  52. COMPOUND YIGANLING CAPSULE [Concomitant]
     Route: 048
     Dates: start: 20221118

REACTIONS (7)
  - Blood bilirubin increased [Not Recovered/Not Resolved]
  - Hyperlipidaemia [Recovered/Resolved]
  - Urinary tract infection [Recovered/Resolved]
  - Blood alkaline phosphatase increased [Recovered/Resolved]
  - Pyrexia [Recovered/Resolved]
  - Hypertriglyceridaemia [Recovered/Resolved]
  - Ventricular extrasystoles [Recovered/Resolved]

NARRATIVE: CASE EVENT DATE: 20211217
